FAERS Safety Report 9260969 (Version 1)
Quarter: 2013Q2

REPORT INFORMATION
  Report Type: Spontaneous
  Country: US (occurrence: US)
  Receive Date: 20130429
  Receipt Date: 20130429
  Transmission Date: 20140414
  Serious: No
  Sender: FDA-Public Use
  Company Number: US-AMGEN-USASP2012046576

PATIENT
  Age: 45 Year
  Sex: Female

DRUGS (15)
  1. SENSIPAR [Suspect]
     Indication: HYPERPARATHYROIDISM SECONDARY
     Dosage: UNK
     Route: 048
  2. NIFEDIPINE [Concomitant]
  3. FOLIC ACID [Concomitant]
  4. AMBIEN [Concomitant]
  5. XANAX [Concomitant]
  6. XANAX XR [Concomitant]
  7. ZOFRAN                             /00955301/ [Concomitant]
     Dosage: UNK
  8. BENADRYL                           /00000402/ [Concomitant]
     Dosage: UNK
  9. MINOXIDIL [Concomitant]
  10. TRAZODONE [Concomitant]
  11. SERTRALINE [Concomitant]
  12. PREMPRO [Concomitant]
     Dosage: 1 UNK, UNK
  13. HYDROCODONE [Concomitant]
  14. STADOL [Concomitant]
  15. METOPROLOL [Concomitant]
     Dosage: 2 MG, UNK

REACTIONS (1)
  - Blood parathyroid hormone increased [Not Recovered/Not Resolved]
